FAERS Safety Report 20608613 (Version 1)
Quarter: 2022Q1

REPORT INFORMATION
  Report Type: Spontaneous
  Country: US (occurrence: None)
  Receive Date: 20220317
  Receipt Date: 20220317
  Transmission Date: 20220423
  Serious: Yes (Life-Threatening)
  Sender: FDA-Public Use
  Company Number: None

PATIENT
  Age: 79 Year
  Sex: Female

DRUGS (2)
  1. ANDEXANET ALFA [Suspect]
     Active Substance: ANDEXANET ALFA
     Dosage: FREQUENCY : ONCE;?
     Route: 041
     Dates: start: 20220316, end: 20220316
  2. NICARDIPINE [Concomitant]
     Active Substance: NICARDIPINE
     Dates: start: 20220316

REACTIONS (8)
  - Aphasia [None]
  - Fall [None]
  - Cerebrovascular accident [None]
  - Hypotonia [None]
  - Cerebral haemorrhage [None]
  - Blood pressure increased [None]
  - Hypertensive emergency [None]
  - Acute myocardial infarction [None]

NARRATIVE: CASE EVENT DATE: 20220316
